FAERS Safety Report 10006905 (Version 1)
Quarter: 2014Q1

REPORT INFORMATION
  Report Type: Spontaneous
  Country: US (occurrence: None)
  Receive Date: 20140312
  Receipt Date: 20140312
  Transmission Date: 20141002
  Serious: Yes (Other)
  Sender: FDA-Public Use
  Company Number: None

PATIENT
  Age: 58 Year
  Sex: Female

DRUGS (1)
  1. BUDESONIDE [Suspect]
     Indication: COLITIS
     Dosage: 3 CAPSULES ONCE DAILY TAKEN BY MOUTH
     Route: 048

REACTIONS (2)
  - Swelling face [None]
  - Joint swelling [None]
